FAERS Safety Report 19079861 (Version 1)
Quarter: 2021Q1

REPORT INFORMATION
  Report Type: Other
  Country: JP (occurrence: JP)
  Receive Date: 20210331
  Receipt Date: 20210331
  Transmission Date: 20210420
  Serious: Yes (Other)
  Sender: FDA-Public Use
  Company Number: JP-VALIDUS PHARMACEUTICALS LLC-JP-2021VAL000740

PATIENT
  Age: 82 Year
  Sex: Female
  Weight: 45 kg

DRUGS (6)
  1. CEFOTAXIME SODIUM [Suspect]
     Active Substance: CEFOTAXIME SODIUM
     Indication: BRAIN ABSCESS
     Dosage: UNK
     Route: 041
     Dates: start: 20130321, end: 20130326
  2. PHENOBAL                           /00023201/ [Suspect]
     Active Substance: PHENOBARBITAL
     Indication: EPILEPSY
     Dosage: UNK
     Route: 048
     Dates: start: 20210310, end: 20130419
  3. VICCILLIN                          /00000502/ [Suspect]
     Active Substance: AMPICILLIN SODIUM
     Dosage: UNK
     Route: 041
     Dates: start: 20130327, end: 20130416
  4. CEFOTAXIME SODIUM [Suspect]
     Active Substance: CEFOTAXIME SODIUM
     Indication: BRAIN NEOPLASM
     Dosage: UNK
     Dates: start: 20130327, end: 20130416
  5. E KEPPRA [Suspect]
     Active Substance: LEVETIRACETAM
     Indication: EPILEPSY
     Dosage: UNK
     Route: 048
     Dates: start: 20130309, end: 20130419
  6. VICCILLIN                          /00000502/ [Suspect]
     Active Substance: AMPICILLIN SODIUM
     Indication: BRAIN ABSCESS
     Dosage: UNK
     Route: 041
     Dates: start: 20130321, end: 20130326

REACTIONS (1)
  - Drug eruption [Recovering/Resolving]

NARRATIVE: CASE EVENT DATE: 20130416
